FAERS Safety Report 10455519 (Version 2)
Quarter: 2014Q3

REPORT INFORMATION
  Report Type: Spontaneous
  Country: US (occurrence: None)
  Receive Date: 20140912
  Receipt Date: 20140916
  Transmission Date: 20150326
  Serious: Yes (Other)
  Sender: FDA-Public Use
  Company Number: 2014COV00108

PATIENT
  Age: 75 Year
  Sex: Female

DRUGS (5)
  1. LANOXIN [Suspect]
     Active Substance: DIGOXIN
     Indication: ATRIAL FIBRILLATION
     Dates: start: 2012
  2. COREG CR [Concomitant]
     Active Substance: CARVEDILOL PHOSPHATE
  3. TURMERIC [Concomitant]
     Active Substance: TURMERIC
  4. FISH OIL [Concomitant]
     Active Substance: FISH OIL
  5. GINGER. [Concomitant]
     Active Substance: GINGER

REACTIONS (4)
  - Cardiomyopathy [None]
  - Mobility decreased [None]
  - Cardiac pacemaker insertion [None]
  - Condition aggravated [None]

NARRATIVE: CASE EVENT DATE: 2013
